FAERS Safety Report 23370501 (Version 1)
Quarter: 2024Q1

REPORT INFORMATION
  Report Type: Spontaneous
  Country: US (occurrence: US)
  Receive Date: 20240105
  Receipt Date: 20240105
  Transmission Date: 20240409
  Serious: No
  Sender: FDA-Public Use
  Company Number: US-SA-SAC20231228000286

PATIENT
  Sex: Female
  Weight: 115.6 kg

DRUGS (1)
  1. DUPIXENT [Suspect]
     Active Substance: DUPILUMAB
     Indication: Dermatitis atopic
     Dosage: 300 MG, QOW
     Route: 058
     Dates: start: 2020

REACTIONS (6)
  - Calcinosis [Unknown]
  - General physical health deterioration [Unknown]
  - Emotional distress [Unknown]
  - Eczema [Unknown]
  - Rash [Unknown]
  - Drug ineffective [Unknown]
